FAERS Safety Report 11051142 (Version 1)
Quarter: 2015Q2

REPORT INFORMATION
  Report Type: Spontaneous
  Country: BR (occurrence: BR)
  Receive Date: 20150421
  Receipt Date: 20150421
  Transmission Date: 20150821
  Serious: Yes (Other)
  Sender: FDA-Public Use
  Company Number: BR-PFIZER INC-2014344934

PATIENT
  Age: 55 Year
  Sex: Male
  Weight: 80 kg

DRUGS (2)
  1. CAVERJECT [Suspect]
     Active Substance: ALPROSTADIL
     Indication: ERECTILE DYSFUNCTION
     Dosage: 20 ?G, 2X/WEEK
     Route: 017
     Dates: start: 201410, end: 201502
  2. CIALIS [Concomitant]
     Active Substance: TADALAFIL
     Dosage: DAILY USE
     Dates: start: 201409

REACTIONS (5)
  - Condition aggravated [Unknown]
  - Drug effect decreased [Unknown]
  - Depressed mood [Unknown]
  - Drug ineffective [Unknown]
  - Irritability [Unknown]
